FAERS Safety Report 11513829 (Version 1)
Quarter: 2015Q3

REPORT INFORMATION
  Report Type: Spontaneous
  Country: US (occurrence: US)
  Receive Date: 20150903
  Receipt Date: 20150903
  Transmission Date: 20151125
  Serious: Yes (Other)
  Sender: FDA-Public Use
  Company Number: US-ELI_LILLY_AND_COMPANY-US201212000338

PATIENT
  Age: 14 Year
  Sex: Female

DRUGS (3)
  1. CLONOPIN [Concomitant]
     Active Substance: CLONAZEPAM
  2. CYMBALTA [Suspect]
     Active Substance: DULOXETINE HYDROCHLORIDE
     Indication: ANXIETY
     Dosage: 20 MG, QD
     Dates: start: 20121101
  3. CONTRACEPTIVES [Concomitant]
     Active Substance: UNSPECIFIED INGREDIENT

REACTIONS (4)
  - Suicidal ideation [Unknown]
  - Anxiety [Not Recovered/Not Resolved]
  - Crying [Unknown]
  - Off label use [Unknown]
